FAERS Safety Report 6099392-X (Version None)
Quarter: 2009Q1

REPORT INFORMATION
  Report Type: 
  Country: None (occurrence: None)
  Receive Date: 20090303
  Receipt Date: 20090219
  Transmission Date: 20090719
  Serious: Yes (Other)
  Sender: FDA-Public Use
  Company Number: BR-PFIZER INC-2009173533

PATIENT

DRUGS (1)
  1. CAVERJECT [Suspect]
     Dosage: 10 UG, UNK

REACTIONS (1)
  - ERECTION INCREASED [None]
